FAERS Safety Report 5085593-6 (Version None)
Quarter: 2006Q3

REPORT INFORMATION
  Report Type: 
  Country: None (occurrence: None)
  Receive Date: 20060822
  Receipt Date: 20060523
  Transmission Date: 20061208
  Serious: Yes (Other)
  Sender: FDA-Public Use
  Company Number: GB-GLAXOSMITHKLINE-B0424938A

PATIENT
  Age: 53 Year
  Sex: Female

DRUGS (3)
  1. MALARONE [Suspect]
     Indication: DRUG USE FOR UNKNOWN INDICATION
     Route: 048
     Dates: start: 20060413, end: 20060522
  2. KIVEXA [Suspect]
     Indication: HIV INFECTION
     Route: 048
     Dates: start: 20060413, end: 20060522
  3. SUSTIVA [Concomitant]

REACTIONS (3)
  - ABORTION INDUCED [None]
  - FACE OEDEMA [None]
  - THYROXINE FREE DECREASED [None]
